FAERS Safety Report 24046157 (Version 4)
Quarter: 2024Q4

REPORT INFORMATION
  Report Type: Spontaneous
  Country: US (occurrence: US)
  Receive Date: 20240703
  Receipt Date: 20241120
  Transmission Date: 20250114
  Serious: No
  Sender: PFIZER
  Company Number: US-PFIZER INC-202400202728

PATIENT
  Age: 13 Year
  Sex: Male

DRUGS (1)
  1. GENOTROPIN [Suspect]
     Active Substance: SOMATROPIN
     Dosage: 1.5 MG

REACTIONS (5)
  - Drug dose omission by device [Unknown]
  - Device breakage [Unknown]
  - Device delivery system issue [Unknown]
  - Device leakage [Unknown]
  - Poor quality device used [Unknown]

NARRATIVE: CASE EVENT DATE: 20240625
